FAERS Safety Report 10755336 (Version 1)
Quarter: 2015Q1

REPORT INFORMATION
  Report Type: Spontaneous
  Country: US (occurrence: US)
  Receive Date: 20150202
  Receipt Date: 20150202
  Transmission Date: 20150721
  Serious: Yes (Hospitalization)
  Sender: FDA-Public Use
  Company Number: US-BAYER-2015-012863

PATIENT
  Age: 46 Year
  Sex: Female
  Weight: 83.46 kg

DRUGS (5)
  1. PRILOSEC [Concomitant]
     Active Substance: OMEPRAZOLE MAGNESIUM
  2. KEFLEX [Concomitant]
     Active Substance: CEPHALEXIN
     Indication: OTITIS MEDIA
  3. ALEVE [Suspect]
     Active Substance: NAPROXEN SODIUM
     Indication: ILL-DEFINED DISORDER
  4. RIBAVIRIN. [Suspect]
     Active Substance: RIBAVIRIN
     Indication: CHRONIC HEPATITIS C
     Dosage: 800 MG, QD
     Route: 048
     Dates: start: 19970610
  5. INTRON A [Suspect]
     Active Substance: INTERFERON ALFA-2B
     Indication: CHRONIC HEPATITIS C
     Dosage: 3 MU, TIW
     Route: 058
     Dates: start: 19970610

REACTIONS (6)
  - Abdominal pain [None]
  - Nausea [None]
  - Dyspnoea [None]
  - Headache [None]
  - Diarrhoea [None]
  - Peptic ulcer perforation [None]

NARRATIVE: CASE EVENT DATE: 19970720
